FAERS Safety Report 7529778-5 (Version None)
Quarter: 2011Q2

REPORT INFORMATION
  Report Type: 
  Country: None (occurrence: None)
  Receive Date: 20110531
  Receipt Date: 20110520
  Transmission Date: 20111010
  Serious: Yes (Death, Hospitalization, Other)
  Sender: FDA-Public Use
  Company Number: 2011P002576

PATIENT
  Age: 71 Year
  Sex: Female
  Weight: 56.6996 kg

DRUGS (15)
  1. ZOLPIDEM TARTRATE [Concomitant]
  2. NYSTATIN [Concomitant]
  3. DOCUSATE SODIUM [Concomitant]
  4. PANTOPRAZOLE SODIUM [Concomitant]
  5. ONDANSETRON [Concomitant]
  6. FUROSEMIDE [Concomitant]
  7. METHYLPREDNISOLONE ACETATE [Concomitant]
  8. LEVETIRACETAM [Concomitant]
  9. DEXAMETHASONE [Concomitant]
  10. TEMOZOLOMIDE [Suspect]
     Indication: GLIOBLASTOMA MULTIFORME
     Dosage: ; PO
     Route: 048
     Dates: start: 20101222, end: 20101223
  11. TEMOZOLOMIDE [Suspect]
     Indication: GLIOBLASTOMA MULTIFORME
     Dosage: ; PO
     Route: 048
     Dates: start: 20101206, end: 20101221
  12. ABT-888 [Suspect]
     Indication: GLIOBLASTOMA MULTIFORME
     Dosage: 10 MG; BID; PO
     Route: 048
     Dates: start: 20101206, end: 20101221
  13. BACTRIM	/00086101/ [Concomitant]
  14. MULTIVITAMIN /00097801/ [Concomitant]
  15. ENOXAPARIN SODIUM [Concomitant]

REACTIONS (13)
  - DEEP VEIN THROMBOSIS [None]
  - FIBRIN D DIMER INCREASED [None]
  - PULMONARY OEDEMA [None]
  - PANCYTOPENIA [None]
  - PNEUMONIA [None]
  - NEOPLASM PROGRESSION [None]
  - PULMONARY EMBOLISM [None]
  - PROTHROMBIN TIME PROLONGED [None]
  - ACTIVATED PARTIAL THROMBOPLASTIN TIME PROLONGED [None]
  - REFUSAL OF TREATMENT BY PATIENT [None]
  - GLIOBLASTOMA MULTIFORME [None]
  - PNEUMOCYSTIS JIROVECI PNEUMONIA [None]
  - ATELECTASIS [None]
